FAERS Safety Report 17478241 (Version 3)
Quarter: 2021Q2

REPORT INFORMATION
  Report Type: Spontaneous
  Country: US (occurrence: US)
  Receive Date: 20200228
  Receipt Date: 20210407
  Transmission Date: 20210716
  Serious: Yes (Other)
  Sender: FDA-Public Use
  Company Number: US-ASTRAZENECA-2020SE28940

PATIENT
  Age: 15418 Day
  Sex: Male
  Weight: 116.1 kg

DRUGS (17)
  1. NEXIUM [Suspect]
     Active Substance: ESOMEPRAZOLE MAGNESIUM
     Indication: GASTROOESOPHAGEAL REFLUX DISEASE
     Route: 048
     Dates: start: 201401, end: 201612
  2. INSULIN [Concomitant]
     Active Substance: INSULIN NOS
     Indication: DIABETES MELLITUS
     Dates: start: 201601
  3. ATORVASTATIN [Concomitant]
     Active Substance: ATORVASTATIN
  4. CALCIUM ACETATE. [Concomitant]
     Active Substance: CALCIUM ACETATE
  5. BRILINTA [Concomitant]
     Active Substance: TICAGRELOR
  6. AMLODIPINE [Concomitant]
     Active Substance: AMLODIPINE BESYLATE
     Indication: HYPERTENSION
     Dates: start: 201601
  7. NORVASC [Concomitant]
     Active Substance: AMLODIPINE BESYLATE
  8. COREG [Concomitant]
     Active Substance: CARVEDILOL
  9. ATORVASTATIN [Concomitant]
     Active Substance: ATORVASTATIN
     Indication: BLOOD CHOLESTEROL INCREASED
     Dates: start: 201801
  10. SENSIPAR [Concomitant]
     Active Substance: CINACALCET HYDROCHLORIDE
  11. LISINOPRIL. [Concomitant]
     Active Substance: LISINOPRIL
  12. NEXIUM [Suspect]
     Active Substance: ESOMEPRAZOLE MAGNESIUM
     Indication: GASTROOESOPHAGEAL REFLUX DISEASE
     Route: 048
     Dates: start: 2014, end: 2016
  13. HUMALOG [Concomitant]
     Active Substance: INSULIN LISPRO
  14. HYDRALAZINE [Concomitant]
     Active Substance: HYDRALAZINE HYDROCHLORIDE
  15. PANTOPRAZOLE [Concomitant]
     Active Substance: PANTOPRAZOLE
  16. ASPIRIN. [Concomitant]
     Active Substance: ASPIRIN
  17. MULTIVITAMIN [Concomitant]
     Active Substance: VITAMINS

REACTIONS (6)
  - Acute kidney injury [Recovered/Resolved]
  - Nephrogenic anaemia [Unknown]
  - Chronic kidney disease-mineral and bone disorder [Unknown]
  - Chronic kidney disease [Recovered/Resolved]
  - End stage renal disease [Unknown]
  - Renal failure [Unknown]

NARRATIVE: CASE EVENT DATE: 20170323
